FAERS Safety Report 7568433-2 (Version None)
Quarter: 2011Q2

REPORT INFORMATION
  Report Type: 
  Country: None (occurrence: None)
  Receive Date: 20110623
  Receipt Date: 20110620
  Transmission Date: 20111010
  Serious: Yes (Other)
  Sender: FDA-Public Use
  Company Number: US-TEVA-287156USA

PATIENT
  Age: 58 Year
  Sex: Male

DRUGS (1)
  1. DOXYCYCLINE [Suspect]
     Indication: DENTAL OPERATION
     Route: 048

REACTIONS (3)
  - LOSS OF CONSCIOUSNESS [None]
  - AMNESIA [None]
  - DIZZINESS [None]
